FAERS Safety Report 6687251-0 (Version None)
Quarter: 2010Q2

REPORT INFORMATION
  Report Type: 
  Country: None (occurrence: None)
  Receive Date: 20100419
  Receipt Date: 20100407
  Transmission Date: 20101027
  Serious: Yes (Other)
  Sender: FDA-Public Use
  Company Number: NL-PFIZER INC-2010038062

PATIENT
  Age: 55 Year
  Sex: Male
  Weight: 96 kg

DRUGS (8)
  1. ZAVEDOS [Suspect]
     Dosage: UNK
     Dates: start: 20100324
  2. ZOPLICONE [Concomitant]
     Dosage: 7.5 MG, 2X/DAY
     Route: 048
  3. METOCLOPRAMIDE [Concomitant]
     Dosage: 10 MG, UNK
     Route: 048
  4. MOVICOLON [Concomitant]
  5. HEPARIN [Concomitant]
     Dosage: 500 IU, 1X/DAY
     Route: 042
  6. AMBISOME [Concomitant]
     Dosage: 10 MG, UNK
     Route: 055
  7. CIPROFLOXACIN [Concomitant]
     Dosage: 50 MG, 2X/DAY
     Route: 048
  8. FLUCONAZOLE [Concomitant]
     Dosage: 400 MG, 1X/DAY
     Route: 048

REACTIONS (2)
  - CHEST DISCOMFORT [None]
  - HAEMOGLOBIN DECREASED [None]
